FAERS Safety Report 21060070 (Version 4)
Quarter: 2023Q4

REPORT INFORMATION
  Report Type: Spontaneous
  Country: US (occurrence: US)
  Receive Date: 20220708
  Receipt Date: 20231115
  Transmission Date: 20240109
  Serious: No
  Sender: FDA-Public Use
  Company Number: US-PFIZER INC-PV202200018352

PATIENT
  Age: 34 Year
  Sex: Female
  Weight: 86.18 kg

DRUGS (1)
  1. PREMARIN [Suspect]
     Active Substance: ESTROGENS, CONJUGATED
     Indication: Hormone replacement therapy
     Dosage: 0.5 ONCE A DAY
     Dates: start: 199307

REACTIONS (6)
  - Vision blurred [Recovered/Resolved]
  - Poor quality sleep [Recovered/Resolved]
  - Cough [Recovered/Resolved]
  - Aphonia [Recovered/Resolved]
  - Nasopharyngitis [Recovered/Resolved]
  - Off label use [Unknown]

NARRATIVE: CASE EVENT DATE: 19930701
